FAERS Safety Report 9406678 (Version 2)
Quarter: 2013Q3

REPORT INFORMATION
  Report Type: Spontaneous
  Country: US (occurrence: US)
  Receive Date: 20130718
  Receipt Date: 20130905
  Transmission Date: 20140515
  Serious: No
  Sender: FDA-Public Use
  Company Number: US-BIOGENIDEC-2013BI064604

PATIENT
  Sex: Female

DRUGS (2)
  1. TYSABRI [Suspect]
     Indication: MULTIPLE SCLEROSIS
     Route: 042
     Dates: start: 20080508
  2. AVONEX [Concomitant]
     Indication: MULTIPLE SCLEROSIS
     Route: 030
     Dates: start: 20070726

REACTIONS (7)
  - Secondary progressive multiple sclerosis [Unknown]
  - Depression [Unknown]
  - Impaired driving ability [Unknown]
  - Mobility decreased [Unknown]
  - Incontinence [Unknown]
  - Multiple sclerosis relapse [Unknown]
  - Drug ineffective [Unknown]
